FAERS Safety Report 16672819 (Version 1)
Quarter: 2019Q3

REPORT INFORMATION
  Report Type: Spontaneous
  Country: US (occurrence: US)
  Receive Date: 20190806
  Receipt Date: 20190806
  Transmission Date: 20191004
  Serious: Yes (Life-Threatening, Other)
  Sender: FDA-Public Use
  Company Number: US-TEVA-2019-US-1087255

PATIENT
  Age: 56 Year
  Sex: Male

DRUGS (4)
  1. LIDOCAINE. [Suspect]
     Active Substance: LIDOCAINE
     Indication: EPIDURAL TEST DOSE
     Route: 008
  2. ESMOLOL [Suspect]
     Active Substance: ESMOLOL HYDROCHLORIDE
     Indication: ATRIAL FIBRILLATION
     Dosage: BOLUS DOSE
     Route: 065
  3. EPINEPHRINE. [Suspect]
     Active Substance: EPINEPHRINE
     Indication: EPIDURAL TEST DOSE
     Dosage: THE SECOND EPIDURAL TEST DOSE INADVERTENTLY CONTAINED 100 MICROG EPINEPHRINE INSTEAD OF THE INTEN...
     Route: 008
  4. EPINEPHRINE. [Suspect]
     Active Substance: EPINEPHRINE
     Indication: EPIDURAL TEST DOSE
     Route: 008

REACTIONS (3)
  - Atrial fibrillation [Recovered/Resolved]
  - Supraventricular tachycardia [Recovered/Resolved]
  - Accidental overdose [Unknown]
